FAERS Safety Report 5240499-4 (Version None)
Quarter: 2007Q1

REPORT INFORMATION
  Report Type: 
  Country: None (occurrence: None)
  Receive Date: 20070219
  Receipt Date: 20070209
  Transmission Date: 20070707
  Serious: Yes (Hospitalization)
  Sender: FDA-Public Use
  Company Number: FR-GLAXOSMITHKLINE-B0457702A

PATIENT
  Age: 53 Year
  Sex: Female

DRUGS (3)
  1. NARAMIG [Suspect]
     Indication: MIGRAINE
     Route: 048
     Dates: start: 20011215, end: 20051215
  2. KETOPROFEN [Suspect]
     Indication: MYOSITIS
     Dosage: 75MG TWICE PER DAY
     Route: 048
     Dates: start: 20011215, end: 20051215
  3. DI ANTALVIC [Suspect]
     Indication: HEADACHE
     Route: 048
     Dates: start: 20011215, end: 20051215

REACTIONS (2)
  - DRUG ABUSER [None]
  - HEADACHE [None]
